FAERS Safety Report 8145680 (Version 4)
Quarter: 2012Q4

REPORT INFORMATION
  Report Type: 
  Country: US (occurrence: US)
  Receive Date: 20110921
  Receipt Date: 20120828
  Transmission Date: 20130627
  Serious: Yes (Hospitalization, Other)
  Sender: FDA-Public Use
  Company Number: US-ELI_LILLY_AND_COMPANY-US201010000570

PATIENT
  Age: 70 None
  Sex: Female

DRUGS (12)
  1. FORTEO [Suspect]
     Indication: OSTEOPOROSIS
     Dosage: 20 ug, qd
     Route: 065
     Dates: start: 20100915
  2. FORTEO [Suspect]
     Dosage: 20 ug, qd
     Route: 065
  3. FORTEO [Suspect]
     Dosage: 20 ug, qd
     Route: 065
  4. FORTEO [Suspect]
     Dosage: 20 ug, qd
     Route: 065
  5. FORTEO [Suspect]
     Dosage: 20 ug, qd
     Route: 065
  6. FORTEO [Suspect]
     Dosage: 20 ug, qd
     Route: 065
  7. FORTEO [Suspect]
     Dosage: 20 ug, qd
  8. VICODIN [Concomitant]
     Indication: PAIN
  9. LIDOCAINE [Concomitant]
  10. PLAVIX [Concomitant]
     Dosage: UNK, unknown
  11. ASPIRIN [Concomitant]
     Dosage: UNK, unknown
  12. VITAMIN D NOS [Concomitant]

REACTIONS (25)
  - Joint dislocation [Unknown]
  - Joint dislocation [Unknown]
  - Bone disorder [Unknown]
  - Movement disorder [Unknown]
  - Musculoskeletal discomfort [Unknown]
  - Pain [Unknown]
  - Limb discomfort [Unknown]
  - Paraesthesia [Unknown]
  - Flatulence [Not Recovered/Not Resolved]
  - Mastication disorder [Unknown]
  - Rotator cuff syndrome [Unknown]
  - Nervousness [Unknown]
  - Limb injury [Unknown]
  - Haemorrhage [Unknown]
  - Tooth fracture [Unknown]
  - Mass [Unknown]
  - Injection site bruising [Not Recovered/Not Resolved]
  - Neck pain [Unknown]
  - Injection site pain [Unknown]
  - Asthenia [Unknown]
  - Cough [Unknown]
  - Pain [Unknown]
  - Vitamin D decreased [Unknown]
  - Movement disorder [Not Recovered/Not Resolved]
  - Oedema peripheral [Unknown]
